FAERS Safety Report 8808511 (Version 1)
Quarter: 2012Q4

REPORT INFORMATION
  Report Type: Spontaneous
  Country: US (occurrence: None)
  Receive Date: 20120920
  Receipt Date: 20120920
  Transmission Date: 20130627
  Serious: Yes (Life-Threatening)
  Sender: FDA-Public Use
  Company Number: None

PATIENT
  Age: 20 Year
  Sex: Female
  Weight: 62.8 kg

DRUGS (1)
  1. PROPOFOL [Suspect]
     Indication: SEIZURE
     Dosage: increased to 150mcg/kg/min continuous IV Drip
     Route: 041
     Dates: start: 20120430, end: 20120502

REACTIONS (7)
  - Metabolic acidosis [None]
  - Cerebrospinal fluid leakage [None]
  - Unresponsive to stimuli [None]
  - Convulsion [None]
  - Respiratory arrest [None]
  - Intracranial hypotension [None]
  - Aspartate aminotransferase increased [None]
